FAERS Safety Report 5405916-5 (Version None)
Quarter: 2007Q3

REPORT INFORMATION
  Report Type: 
  Country: None (occurrence: None)
  Receive Date: 20070802
  Receipt Date: 20070720
  Transmission Date: 20080115
  Serious: Yes (Other)
  Sender: FDA-Public Use
  Company Number: 8020166

PATIENT
  Age: 37 Year
  Sex: Female

DRUGS (4)
  1. KEPPRA [Suspect]
     Dosage: 4000 MG PO
     Route: 048
  2. PROGESTERONE [Concomitant]
  3. INSULIN [Concomitant]
  4. ZOFRAN [Concomitant]

REACTIONS (3)
  - DRUG EXPOSURE DURING PREGNANCY [None]
  - PRE-ECLAMPSIA [None]
  - PREMATURE LABOUR [None]
